FAERS Safety Report 10572839 (Version 1)
Quarter: 2014Q4

REPORT INFORMATION
  Report Type: Spontaneous
  Country: SE (occurrence: None)
  Receive Date: 20141106
  Receipt Date: 20141106
  Transmission Date: 20150529
  Serious: Yes (Hospitalization)
  Sender: FDA-Public Use
  Company Number: 201410IM007287

PATIENT
  Age: 74 Year
  Sex: Male

DRUGS (5)
  1. HYDROCHLORTHIAZIDE [Concomitant]
     Active Substance: HYDROCHLOROTHIAZIDE
  2. BICALUTAMIDE TEVA [Suspect]
     Active Substance: BICALUTAMIDE
  3. SILDENAFIL. [Suspect]
     Active Substance: SILDENAFIL
  4. LOSARTAN [Concomitant]
     Active Substance: LOSARTAN
  5. ESBRIET [Suspect]
     Active Substance: PIRFENIDONE
     Indication: INTERSTITIAL LUNG DISEASE
     Route: 048
     Dates: start: 20140521

REACTIONS (5)
  - Sinus node dysfunction [None]
  - Coronary artery stenosis [None]
  - Coronary artery thrombosis [None]
  - Cardiac arrest [None]
  - Myocardial infarction [None]

NARRATIVE: CASE EVENT DATE: 20140818
